FAERS Safety Report 17898238 (Version 1)
Quarter: 2020Q2

REPORT INFORMATION
  Report Type: Spontaneous
  Country: CA (occurrence: CA)
  Receive Date: 20200616
  Receipt Date: 20200616
  Transmission Date: 20200714
  Serious: Yes (Other)
  Sender: FDA-Public Use
  Company Number: CA-AUROBINDO-AUR-APL-2020-028935

PATIENT

DRUGS (6)
  1. RIVOTRIL [Interacting]
     Active Substance: CLONAZEPAM
     Indication: POOR QUALITY SLEEP
     Dosage: UNK
     Route: 048
  2. ZOPICLONE [Interacting]
     Active Substance: ZOPICLONE
     Indication: POOR QUALITY SLEEP
     Dosage: UNK
     Route: 065
  3. QUETIAPINE FILM-COATED TABLET [Suspect]
     Active Substance: QUETIAPINE
     Indication: POOR QUALITY SLEEP
     Dosage: UNK
     Route: 065
  4. OXAZEPAM. [Interacting]
     Active Substance: OXAZEPAM
     Indication: POOR QUALITY SLEEP
     Dosage: UNK
     Route: 065
  5. LEVOMEPROMAZINE MALEATE [Interacting]
     Active Substance: LEVOMEPROMAZINE MALEATE
     Indication: POOR QUALITY SLEEP
     Dosage: UNK
     Route: 065
  6. TEMAZEPAM. [Interacting]
     Active Substance: TEMAZEPAM
     Indication: POOR QUALITY SLEEP
     Dosage: UNK
     Route: 065

REACTIONS (3)
  - No adverse event [Unknown]
  - Drug ineffective [Unknown]
  - Drug interaction [Unknown]
